FAERS Safety Report 15289596 (Version 1)
Quarter: 2018Q4

REPORT INFORMATION
  Report Type: Spontaneous
  Country: US (occurrence: US)
  Receive Date: 20180817
  Receipt Date: 20180817
  Transmission Date: 20190204
  Serious: Yes (Other)
  Sender: FDA-Public Use
  Company Number: US-CURIUM PHARMACEUTICALS-201000446

PATIENT
  Age: 27 Year
  Sex: Female

DRUGS (1)
  1. OCTREOSCAN [Suspect]
     Active Substance: INDIUM IN-111 CHLORIDE\INDIUM IN-111 PENTETREOTIDE
     Indication: CARCINOID TUMOUR OF THE GASTROINTESTINAL TRACT
     Dosage: 720 MCI IN 4 SEPARATE TREATMENTS

REACTIONS (5)
  - Haemoglobin abnormal [Unknown]
  - Neurotoxicity [Unknown]
  - Product use in unapproved indication [Recovered/Resolved]
  - Musculoskeletal pain [Unknown]
  - Product use issue [Recovered/Resolved]
